FAERS Safety Report 20693679 (Version 4)
Quarter: 2023Q1

REPORT INFORMATION
  Report Type: Report from Study
  Country: BR (occurrence: BR)
  Receive Date: 20220411
  Receipt Date: 20230316
  Transmission Date: 20230417
  Serious: Yes (Hospitalization, Other)
  Sender: FDA-Public Use
  Company Number: BR-ABBVIE-22K-020-4349666-00

PATIENT
  Age: 56 Year
  Sex: Female
  Weight: 78 kg

DRUGS (6)
  1. RINVOQ [Suspect]
     Active Substance: UPADACITINIB
     Indication: Rheumatoid arthritis
     Dosage: FORM STRENGTH: 15 MILLIGRAM
     Route: 048
     Dates: start: 20211027, end: 20220403
  2. OMEPRAZOLE [Concomitant]
     Active Substance: OMEPRAZOLE
     Indication: Prophylaxis
  3. BUTYLSCOPOLAMINE BROMIDE [Suspect]
     Active Substance: BUTYLSCOPOLAMINE BROMIDE
     Indication: Pain
     Route: 065
  4. VITAMIN B12 [Concomitant]
     Active Substance: CYANOCOBALAMIN
     Indication: Product used for unknown indication
  5. CLONAZEPAM [Concomitant]
     Active Substance: CLONAZEPAM
     Indication: Sleep disorder therapy
     Dosage: 2 TABLETS
  6. LEVOFLOXACIN [Suspect]
     Active Substance: LEVOFLOXACIN
     Indication: Urinary tract disorder
     Dosage: FORM STRENGTH : 500 MG
     Route: 065

REACTIONS (29)
  - Varicose vein [Not Recovered/Not Resolved]
  - Gastric disorder [Not Recovered/Not Resolved]
  - Malaise [Not Recovered/Not Resolved]
  - Hepatitis [Not Recovered/Not Resolved]
  - Gastritis [Not Recovered/Not Resolved]
  - Swelling [Recovered/Resolved]
  - Urinary tract infection [Recovering/Resolving]
  - Inflammation [Not Recovered/Not Resolved]
  - Limb deformity [Unknown]
  - Weight decreased [Unknown]
  - Vomiting [Recovered/Resolved]
  - Haematoma [Unknown]
  - Arthralgia [Not Recovered/Not Resolved]
  - Joint range of motion decreased [Recovered/Resolved]
  - Pain [Recovering/Resolving]
  - Renal disorder [Unknown]
  - Depressed mood [Unknown]
  - Nausea [Unknown]
  - Localised infection [Unknown]
  - Peripheral swelling [Recovered/Resolved]
  - Renal pain [Recovering/Resolving]
  - Infarction [Unknown]
  - Blood pressure increased [Unknown]
  - Vomiting [Unknown]
  - Joint swelling [Unknown]
  - Abdominal pain upper [Unknown]
  - Vein rupture [Unknown]
  - Insomnia [Unknown]
  - Skin ulcer [Unknown]

NARRATIVE: CASE EVENT DATE: 20220321
